FAERS Safety Report 18917880 (Version 1)
Quarter: 2021Q1

REPORT INFORMATION
  Report Type: Spontaneous
  Country: TW (occurrence: TW)
  Receive Date: 20210219
  Receipt Date: 20210219
  Transmission Date: 20210420
  Serious: Yes (Other)
  Sender: FDA-Public Use
  Company Number: TW-009507513-2102TWN007260

PATIENT
  Age: 34 Year
  Sex: Female

DRUGS (2)
  1. ORGALUTRAN [Suspect]
     Active Substance: GANIRELIX ACETATE
     Indication: INFERTILITY FEMALE
     Dosage: UNK
  2. GONAL?F [Suspect]
     Active Substance: FOLLITROPIN
     Indication: INFERTILITY FEMALE
     Dosage: UNK

REACTIONS (3)
  - Embolism venous [Unknown]
  - Ovarian hyperstimulation syndrome [Unknown]
  - Maternal exposure before pregnancy [Recovered/Resolved]
